FAERS Safety Report 8426310-9 (Version None)
Quarter: 2012Q2

REPORT INFORMATION
  Report Type: 
  Country: None (occurrence: None)
  Receive Date: 20120611
  Receipt Date: 20120605
  Transmission Date: 20120825
  Serious: Yes (Other)
  Sender: FDA-Public Use
  Company Number: US-RB-041149-12

PATIENT
  Age: 34 Year
  Sex: Female

DRUGS (3)
  1. MUCINEX [Suspect]
     Route: 048
     Dates: start: 20120602
  2. MUCINEX [Suspect]
     Indication: PRODUCT USED FOR UNKNOWN INDICATION
     Route: 048
     Dates: start: 20120604
  3. MUCINEX [Suspect]
     Route: 048
     Dates: start: 20120603

REACTIONS (8)
  - TONGUE DISORDER [None]
  - DRY MOUTH [None]
  - SOMNOLENCE [None]
  - SPEECH DISORDER [None]
  - SWOLLEN TONGUE [None]
  - HYPOAESTHESIA ORAL [None]
  - DYSPHAGIA [None]
  - PARAESTHESIA ORAL [None]
